FAERS Safety Report 16827226 (Version 1)
Quarter: 2019Q3

REPORT INFORMATION
  Report Type: Spontaneous
  Country: US (occurrence: US)
  Receive Date: 20190728
  Receipt Date: 20190728
  Transmission Date: 20191005
  Serious: No
  Sender: FDA-Public Use
  Company Number: None

PATIENT
  Age: 66 Year
  Sex: Male
  Weight: 109.8 kg

DRUGS (1)
  1. NALOXEGOL OXALATE. [Suspect]
     Active Substance: NALOXEGOL OXALATE
     Dates: end: 20190710

REACTIONS (39)
  - Confusional state [None]
  - Delirium [None]
  - Anger [None]
  - Decreased appetite [None]
  - Penile pain [None]
  - Blood alkaline phosphatase increased [None]
  - Therapy cessation [None]
  - Hepatic enzyme increased [None]
  - Hyperhidrosis [None]
  - Blood bilirubin increased [None]
  - Hypophagia [None]
  - Fluid intake reduced [None]
  - Skin erosion [None]
  - White blood cell count decreased [None]
  - Blood urea increased [None]
  - Fatigue [None]
  - Tongue discolouration [None]
  - Nausea [None]
  - Diarrhoea [None]
  - Blood sodium decreased [None]
  - Alanine aminotransferase increased [None]
  - Blood albumin decreased [None]
  - Insomnia [None]
  - Chills [None]
  - Aspartate aminotransferase increased [None]
  - Glomerular filtration rate decreased [None]
  - Blood calcium decreased [None]
  - Aggression [None]
  - Abdominal pain lower [None]
  - Pollakiuria [None]
  - Neutrophil count decreased [None]
  - Platelet count decreased [None]
  - Vomiting [None]
  - Haemorrhage [None]
  - Blood creatinine increased [None]
  - Refusal of treatment by patient [None]
  - Dry mouth [None]
  - Dysgeusia [None]
  - Lymphocyte count decreased [None]

NARRATIVE: CASE EVENT DATE: 20190716
